FAERS Safety Report 9462638 (Version 1)
Quarter: 2013Q3

REPORT INFORMATION
  Report Type: Spontaneous
  Country: US (occurrence: US)
  Receive Date: 20130816
  Receipt Date: 20130816
  Transmission Date: 20140515
  Serious: Yes (Other)
  Sender: FDA-Public Use
  Company Number: US-ELI_LILLY_AND_COMPANY-US201308003722

PATIENT
  Age: 59 Year
  Sex: Female

DRUGS (8)
  1. ALIMTA [Suspect]
     Indication: PERITONEAL MESOTHELIOMA MALIGNANT
     Dosage: 500 MG/M2, UNKNOWN
     Route: 065
     Dates: start: 20130321, end: 20130523
  2. CARBOPLATIN [Concomitant]
  3. MEDROL [Concomitant]
  4. SENOKOT                            /00142201/ [Concomitant]
  5. SYNTHROID [Concomitant]
  6. PERCOCET                           /00867901/ [Concomitant]
  7. DECADRON                           /00016001/ [Concomitant]
  8. KYTRIL [Concomitant]

REACTIONS (4)
  - Blood creatinine increased [Unknown]
  - Bone marrow failure [Unknown]
  - Vasculitis [Unknown]
  - Off label use [Unknown]
